FAERS Safety Report 10664418 (Version 1)
Quarter: 2014Q4

REPORT INFORMATION
  Report Type: Spontaneous
  Country: DE (occurrence: None)
  Receive Date: 20141217
  Receipt Date: 20141217
  Transmission Date: 20150529
  Serious: Yes (Other)
  Sender: FDA-Public Use
  Company Number: DE-2014VAL000658

PATIENT
  Age: 32 Year
  Sex: Female

DRUGS (9)
  1. FOLIO (FOLIC ACID, POTASSIUM IODIDE) [Concomitant]
  2. VALSARTAN (VALSARTAN) [Suspect]
     Active Substance: VALSARTAN
     Indication: HYPERTENSION
     Dates: start: 20121206, end: 20130311
  3. METHYLDOPA (METHYLDOPA) [Concomitant]
     Active Substance: METHYLDOPA
  4. DIHYDRALAZINE (DIHYDRALAZINE) [Concomitant]
  5. METOPROLOL TARTRATE. [Suspect]
     Active Substance: METOPROLOL TARTRATE
     Indication: HYPERTENSION
     Dates: start: 20121206, end: 20130601
  6. HYDROCHLOROTHIAZIDE (HYDROCHLOROTHIAZIDE) [Suspect]
     Active Substance: HYDROCHLOROTHIAZIDE
     Indication: HYPERTENSION
     Dates: start: 20121206, end: 20130314
  7. NOVORAPID [Concomitant]
     Active Substance: INSULIN ASPART
  8. THYROXIN (LEVOTHYROXINE SODIUM) [Concomitant]
  9. DIAZEPAM (DIAZEPAM) [Concomitant]
     Active Substance: DIAZEPAM

REACTIONS (5)
  - Acute respiratory distress syndrome [None]
  - Pre-eclampsia [None]
  - Lactation disorder [None]
  - Nephrotic syndrome [None]
  - Maternal exposure during pregnancy [None]
